FAERS Safety Report 22532245 (Version 1)
Quarter: 2023Q2

REPORT INFORMATION
  Report Type: Spontaneous
  Country: CN (occurrence: CN)
  Receive Date: 20230607
  Receipt Date: 20230607
  Transmission Date: 20230721
  Serious: Yes (Other)
  Sender: FDA-Public Use
  Company Number: CN-PFIZER INC-PV202300098494

PATIENT
  Age: 32 Year
  Sex: Female
  Weight: 47.3 kg

DRUGS (9)
  1. VORICONAZOLE [Suspect]
     Active Substance: VORICONAZOLE
     Indication: Infection
     Dosage: 400 MG, Q12H
     Route: 041
     Dates: start: 20211208
  2. VORICONAZOLE [Suspect]
     Active Substance: VORICONAZOLE
     Dosage: 200 MG, Q12H
     Route: 041
     Dates: start: 20211209
  3. PIPERACILLIN AND TAZOBACTAM [Concomitant]
     Active Substance: PIPERACILLIN SODIUM\TAZOBACTAM SODIUM
     Indication: Infection
     Dosage: 4.5 G, Q8H
     Route: 041
     Dates: start: 20211208
  4. MEROPENEM [Concomitant]
     Active Substance: MEROPENEM
     Dosage: 1 G, Q8H
     Route: 041
  5. PHOSPHOLIPID [Concomitant]
     Active Substance: PHOSPHOLIPID
     Dosage: UNK
  6. ILAPRAZOLE [Concomitant]
     Active Substance: ILAPRAZOLE
     Dosage: UNK
  7. CEFUROXIME SODIUM [Concomitant]
     Active Substance: CEFUROXIME SODIUM
     Dosage: UNK
  8. CEFMINOX SODIUM [Concomitant]
     Active Substance: CEFMINOX SODIUM
     Dosage: UNK
  9. ARGATROBAN [Concomitant]
     Active Substance: ARGATROBAN
     Dosage: UNK

REACTIONS (3)
  - Mental disorder [Recovered/Resolved]
  - Visual impairment [Recovered/Resolved]
  - Antibiotic level above therapeutic [Unknown]

NARRATIVE: CASE EVENT DATE: 20211209
